FAERS Safety Report 20764603 (Version 1)
Quarter: 2022Q2

REPORT INFORMATION
  Report Type: Report from Study
  Country: JP (occurrence: JP)
  Receive Date: 20220428
  Receipt Date: 20220428
  Transmission Date: 20220721
  Serious: Yes (Hospitalization)
  Sender: FDA-Public Use
  Company Number: JP-BRISTOL-MYERS SQUIBB COMPANY-2022-021965

PATIENT
  Age: 74 Year
  Sex: Female
  Weight: 53 kg

DRUGS (14)
  1. NIVOLUMAB [Suspect]
     Active Substance: NIVOLUMAB
     Indication: Hepatocellular carcinoma
     Route: 065
     Dates: start: 20220216, end: 20220316
  2. VONOPRAZAN FUMARATE [Concomitant]
     Active Substance: VONOPRAZAN FUMARATE
     Indication: Product used for unknown indication
     Route: 048
     Dates: start: 20210621
  3. BELSOMRA [Concomitant]
     Active Substance: SUVOREXANT
     Route: 048
     Dates: start: 20210612
  4. FEBUXOSTAT [Concomitant]
     Active Substance: FEBUXOSTAT
     Indication: Product used for unknown indication
     Route: 048
     Dates: start: 20210706
  5. ACETAMINOPHEN [Concomitant]
     Active Substance: ACETAMINOPHEN
     Indication: Adverse event
     Route: 048
     Dates: start: 20220411, end: 20220412
  6. HIRUDOID SOFT OINTMENT [Concomitant]
     Indication: Product used for unknown indication
     Route: 061
     Dates: start: 20190711
  7. AMLODIPINE [Concomitant]
     Active Substance: AMLODIPINE BESYLATE
     Indication: Product used for unknown indication
     Route: 048
     Dates: start: 20210721
  8. GLANATEC OPHTHALMIC SOLUTION [Concomitant]
     Indication: Product used for unknown indication
     Route: 047
     Dates: start: 20201216
  9. AMINOLEBAN EN PODER MIX [Concomitant]
     Indication: Product used for unknown indication
     Route: 048
     Dates: start: 20210622
  10. LIVACT COMBINATION GRANULES [Concomitant]
     Indication: Product used for unknown indication
     Route: 048
     Dates: start: 20210929
  11. MIYA-BM TABLET [Concomitant]
     Indication: Product used for unknown indication
     Route: 048
     Dates: start: 20210428
  12. LACTULOSE SYRUP 65% [Concomitant]
     Indication: Product used for unknown indication
     Route: 048
     Dates: start: 20210729
  13. NERISONA OINTMENT [Concomitant]
     Indication: Product used for unknown indication
     Route: 061
     Dates: start: 20190711
  14. ALESION TABLETS [Concomitant]
     Indication: Product used for unknown indication
     Route: 048
     Dates: start: 20220330

REACTIONS (1)
  - Pyrexia [Recovered/Resolved]

NARRATIVE: CASE EVENT DATE: 20220411
